FAERS Safety Report 10091167 (Version 3)
Quarter: 2015Q3

REPORT INFORMATION
  Report Type: Spontaneous
  Country: US (occurrence: US)
  Receive Date: 20140421
  Receipt Date: 20150812
  Transmission Date: 20151125
  Serious: No
  Sender: FDA-Public Use
  Company Number: US-GILEAD-2012-0061489

PATIENT
  Age: 69 Year
  Sex: Male

DRUGS (2)
  1. LETAIRIS [Suspect]
     Active Substance: AMBRISENTAN
     Indication: PULMONARY ARTERIAL HYPERTENSION
     Dosage: 5 MG, UNK
     Route: 048
     Dates: start: 20120222
  2. PROSTACYCLIN [Suspect]
     Active Substance: EPOPROSTENOL
     Route: 042

REACTIONS (5)
  - Flushing [Unknown]
  - Diarrhoea [Unknown]
  - Pain in jaw [Unknown]
  - Pain in extremity [Unknown]
  - Irritability [Unknown]
